FAERS Safety Report 7545641-8 (Version None)
Quarter: 2011Q2

REPORT INFORMATION
  Report Type: 
  Country: None (occurrence: None)
  Receive Date: 20110614
  Receipt Date: 20110531
  Transmission Date: 20111010
  Serious: Yes (Other)
  Sender: FDA-Public Use
  Company Number: DK-RANBAXY-2011RR-45275

PATIENT
  Sex: Female

DRUGS (1)
  1. SIMVASTATIN [Suspect]
     Indication: HYPERCHOLESTEROLAEMIA
     Dosage: 40 MG, QD
     Dates: start: 20070118, end: 20091003

REACTIONS (12)
  - HYPOAESTHESIA [None]
  - FATIGUE [None]
  - PAIN IN EXTREMITY [None]
  - DIARRHOEA [None]
  - JOINT STIFFNESS [None]
  - NECK PAIN [None]
  - HEADACHE [None]
  - AMNESIA [None]
  - SYNCOPE [None]
  - MYALGIA [None]
  - DEPRESSION [None]
  - MUSCLE SPASMS [None]
